FAERS Safety Report 23913028 (Version 7)
Quarter: 2024Q3

REPORT INFORMATION
  Report Type: Spontaneous
  Country: CO (occurrence: CO)
  Receive Date: 20240529
  Receipt Date: 20240919
  Transmission Date: 20241017
  Serious: Yes (Hospitalization)
  Sender: AMGEN
  Company Number: CO-PFIZER INC-PV202400067097

PATIENT
  Age: 72 Year
  Sex: Female

DRUGS (1)
  1. ENBREL [Suspect]
     Active Substance: ETANERCEPT
     Indication: Product used for unknown indication
     Dosage: 50 MG, WEEKLY
     Route: 065

REACTIONS (5)
  - Device malfunction [Unknown]
  - Drug dose omission by device [Unknown]
  - Arthralgia [Unknown]
  - Dysstasia [Unknown]
  - Inflammation [Unknown]
